FAERS Safety Report 10359581 (Version 1)
Quarter: 2014Q3

REPORT INFORMATION
  Report Type: Spontaneous
  Country: FR (occurrence: None)
  Receive Date: 20140801
  Receipt Date: 20140801
  Transmission Date: 20150326
  Serious: Yes (Other)
  Sender: FDA-Public Use
  Company Number: None

PATIENT
  Age: 28 Year
  Sex: Female
  Weight: 55 kg

DRUGS (1)
  1. NEUTROGENA COMPLETE ACNE THERAPY SOLUTION [Suspect]
     Active Substance: BENZOYL PEROXIDE\OCTINOXATE\SALICYLIC ACID\ZINC OXIDE
     Indication: ACNE
     Dates: start: 20140728, end: 20140728

REACTIONS (6)
  - Pain of skin [None]
  - Application site pain [None]
  - Throat tightness [None]
  - Application site swelling [None]
  - Application site erythema [None]
  - Application site pruritus [None]

NARRATIVE: CASE EVENT DATE: 20140728
